FAERS Safety Report 7898360-2 (Version None)
Quarter: 2011Q4

REPORT INFORMATION
  Report Type: 
  Country: None (occurrence: None)
  Receive Date: 20111107
  Receipt Date: 20111102
  Transmission Date: 20120403
  Serious: Yes (Congenital Anomaly, Other)
  Sender: FDA-Public Use
  Company Number: US-PFIZER INC-2011151101

PATIENT
  Sex: Male

DRUGS (5)
  1. LITHIUM [Concomitant]
     Route: 064
  2. TYLENOL-500 [Concomitant]
  3. TEGRETOL [Concomitant]
     Route: 064
  4. CLONOPIN [Concomitant]
     Route: 064
  5. ZOLOFT [Suspect]
     Indication: DEPRESSION
     Dosage: AT NIGHT
     Route: 064

REACTIONS (3)
  - CAESAREAN SECTION [None]
  - MATERNAL EXPOSURE TIMING UNSPECIFIED [None]
  - CONGENITAL ANOMALY [None]
